FAERS Safety Report 23553221 (Version 2)
Quarter: 2024Q1

REPORT INFORMATION
  Report Type: Spontaneous
  Country: US (occurrence: US)
  Receive Date: 20240222
  Receipt Date: 20240226
  Transmission Date: 20240409
  Serious: No
  Sender: FDA-Public Use
  Company Number: US-ELI_LILLY_AND_COMPANY-US202402013040

PATIENT
  Age: 74 Year
  Sex: Male

DRUGS (4)
  1. FORTEO [Suspect]
     Active Substance: TERIPARATIDE
     Indication: Osteoporosis
     Dosage: 250 UG, UNKNOWN
     Route: 058
     Dates: start: 202307
  2. FORTEO [Suspect]
     Active Substance: TERIPARATIDE
     Indication: Osteoporosis
     Dosage: 250 UG, UNKNOWN
     Route: 058
     Dates: start: 202307
  3. FORTEO [Suspect]
     Active Substance: TERIPARATIDE
     Dosage: 250 UG, UNKNOWN
     Route: 058
  4. FORTEO [Suspect]
     Active Substance: TERIPARATIDE
     Dosage: 250 UG, UNKNOWN
     Route: 058

REACTIONS (1)
  - Spinal compression fracture [Not Recovered/Not Resolved]
